FAERS Safety Report 11992859 (Version 1)
Quarter: 2016Q1

REPORT INFORMATION
  Report Type: Spontaneous
  Country: US (occurrence: US)
  Receive Date: 20160203
  Receipt Date: 20160203
  Transmission Date: 20160526
  Serious: No
  Sender: FDA-Public Use
  Company Number: US-UCBSA-2015008999

PATIENT
  Age: 22 Year
  Sex: Male
  Weight: 68 kg

DRUGS (5)
  1. KEPPRA [Suspect]
     Active Substance: LEVETIRACETAM
     Indication: OFF LABEL USE
  2. RISPERDAL [Concomitant]
     Active Substance: RISPERIDONE
     Indication: PRODUCT USED FOR UNKNOWN INDICATION
     Dosage: 0.5 MG, UNK
     Dates: start: 20150201, end: 20150202
  3. KEPPRA [Suspect]
     Active Substance: LEVETIRACETAM
     Indication: ALCOHOL PROBLEM
     Dosage: 500 MG, 2X/DAY (BID)
     Dates: start: 20150118, end: 20150203
  4. DOXEPIN [Concomitant]
     Active Substance: DOXEPIN
     Indication: ALCOHOL PROBLEM
     Dosage: 50 MG, AT NIGHT
     Route: 048
     Dates: start: 20150118
  5. RISPERDAL [Concomitant]
     Active Substance: RISPERIDONE
     Dosage: 1 MG, UNK
     Dates: start: 20150203

REACTIONS (2)
  - Hallucination, visual [Recovered/Resolved]
  - Off label use [Unknown]

NARRATIVE: CASE EVENT DATE: 20150118
